FAERS Safety Report 20965361 (Version 4)
Quarter: 2023Q4

REPORT INFORMATION
  Report Type: Report from Study
  Country: US (occurrence: US)
  Receive Date: 20220616
  Receipt Date: 20231117
  Transmission Date: 20240110
  Serious: No
  Sender: FDA-Public Use
  Company Number: US-NOVARTISTESTPH-NVSC2022US137820

PATIENT
  Sex: Female

DRUGS (2)
  1. ILARIS [Suspect]
     Active Substance: CANAKINUMAB
     Indication: Pyrexia
     Dosage: 450 MG, QMO
     Route: 058
     Dates: start: 20191120
  2. ILARIS [Suspect]
     Active Substance: CANAKINUMAB
     Dosage: 300 MG, OTHER (EVERY 4 WEEKS)
     Route: 058
     Dates: start: 20191120

REACTIONS (1)
  - Inappropriate schedule of product administration [Unknown]
